FAERS Safety Report 8102598-9 (Version None)
Quarter: 2012Q1

REPORT INFORMATION
  Report Type: 
  Country: None (occurrence: None)
  Receive Date: 20120201
  Receipt Date: 20120123
  Transmission Date: 20120608
  Serious: No
  Sender: FDA-Public Use
  Company Number: US-JNJFOC-20120110220

PATIENT
  Sex: Female
  Weight: 81.65 kg

DRUGS (10)
  1. TRICOR [Concomitant]
     Indication: BLOOD CHOLESTEROL INCREASED
     Route: 048
  2. VYTORIN [Concomitant]
     Indication: BLOOD CHOLESTEROL INCREASED
     Route: 048
  3. FENTANYL-100 [Suspect]
     Indication: INTERVERTEBRAL DISC DEGENERATION
     Route: 062
     Dates: start: 20100101
  4. DEPAKOTE [Concomitant]
     Indication: BIPOLAR DISORDER
     Route: 048
  5. PREMPRO [Concomitant]
     Indication: HORMONE THERAPY
     Route: 048
  6. KLONOPIN [Concomitant]
     Indication: BIPOLAR DISORDER
     Route: 048
  7. NORVASC [Concomitant]
     Indication: HYPERTENSION
     Route: 048
  8. SEROQUEL [Concomitant]
     Indication: BIPOLAR DISORDER
     Route: 048
  9. SECTRAL [Concomitant]
     Indication: HYPERTENSION
     Route: 048
  10. VITAMIN B-12 [Concomitant]
     Indication: ANAEMIA
     Route: 030

REACTIONS (5)
  - INSOMNIA [None]
  - DRUG DOSE OMISSION [None]
  - DENTAL CARIES [None]
  - FEELING ABNORMAL [None]
  - TOOTH DISORDER [None]
